FAERS Safety Report 14860995 (Version 1)
Quarter: 2018Q2

REPORT INFORMATION
  Report Type: Spontaneous
  Country: US (occurrence: US)
  Receive Date: 20180423
  Receipt Date: 20180423
  Transmission Date: 20180711
  Serious: Yes (Life-Threatening, Hospitalization, Other)
  Sender: FDA-Public Use
  Company Number: None

PATIENT
  Age: 64 Year
  Sex: Male
  Weight: 98.5 kg

DRUGS (4)
  1. ACYCLOVIR 400 MG TABLET [Concomitant]
     Active Substance: ACYCLOVIR
     Dates: start: 20180319
  2. RITUXIMAB. [Suspect]
     Active Substance: RITUXIMAB
     Indication: MANTLE CELL LYMPHOMA
     Dosage: OTHER FREQUENCY:Q28DAYS;?
     Route: 041
  3. ALLOPURINOL 300 MG TABLET [Concomitant]
     Active Substance: ALLOPURINOL
     Dates: start: 20180319
  4. RITUXIMAB. [Suspect]
     Active Substance: RITUXIMAB
     Indication: MANTLE CELL LYMPHOMA
     Dosage: ?          OTHER FREQUENCY:Q28 DAYS;?
     Route: 041

REACTIONS (8)
  - Nausea [None]
  - Pneumonia [None]
  - Pyrexia [None]
  - Chest pain [None]
  - Hypoxia [None]
  - Haemoglobin decreased [None]
  - Dyspnoea [None]
  - Chills [None]

NARRATIVE: CASE EVENT DATE: 20180319
